FAERS Safety Report 11855619 (Version 1)
Quarter: 2015Q4

REPORT INFORMATION
  Report Type: Spontaneous
  Country: US (occurrence: US)
  Receive Date: 20151221
  Receipt Date: 20151221
  Transmission Date: 20160305
  Serious: No
  Sender: FDA-Public Use
  Company Number: US-PERRIGO-15US009416

PATIENT
  Age: 74 Year
  Sex: Female

DRUGS (1)
  1. BACITRACIN OPHTHALMIC USP 500U/G 0S4 [Suspect]
     Active Substance: BACITRACIN
     Indication: PROPHYLAXIS
     Dosage: SMALL AMOUNT, QD
     Route: 047
     Dates: start: 20150904, end: 20150905

REACTIONS (5)
  - Off label use [Recovered/Resolved]
  - Hypersensitivity [Recovered/Resolved]
  - Eye pruritus [Recovered/Resolved]
  - Eye swelling [Recovered/Resolved]
  - Ocular hyperaemia [Recovered/Resolved]

NARRATIVE: CASE EVENT DATE: 20150904
